FAERS Safety Report 6831577-4 (Version None)
Quarter: 2010Q3

REPORT INFORMATION
  Report Type: 
  Country: None (occurrence: None)
  Receive Date: 20100712
  Receipt Date: 20100628
  Transmission Date: 20110219
  Serious: Yes (Other)
  Sender: FDA-Public Use
  Company Number: PHHY2010US41720

PATIENT
  Sex: Female
  Weight: 148 kg

DRUGS (4)
  1. RECLAST [Suspect]
     Indication: OSTEOPOROSIS
     Dosage: 5 MG/ PER YEARS
     Route: 042
     Dates: start: 20100603
  2. CIPRO [Concomitant]
     Dosage: 500 MG, BID
     Route: 048
     Dates: start: 20100610
  3. MICRO-K [Concomitant]
     Dosage: 8 MG, OD
     Route: 048
     Dates: start: 20100611
  4. CELEBREX [Concomitant]
     Dosage: 200 MG, OD
     Route: 048
     Dates: start: 20100617

REACTIONS (22)
  - ABDOMINAL PAIN [None]
  - ARTHRALGIA [None]
  - BACK PAIN [None]
  - BLISTER [None]
  - BLOOD CREATININE DECREASED [None]
  - BLOOD POTASSIUM DECREASED [None]
  - CHEST PAIN [None]
  - DIZZINESS [None]
  - DYSPNOEA [None]
  - DYSURIA [None]
  - HAEMATURIA [None]
  - HYPOAESTHESIA [None]
  - KIDNEY INFECTION [None]
  - NAUSEA [None]
  - PAIN [None]
  - PHARYNGEAL OEDEMA [None]
  - PYREXIA [None]
  - RENAL FAILURE [None]
  - TONGUE OEDEMA [None]
  - TREMOR [None]
  - VOMITING [None]
  - WEIGHT DECREASED [None]
